FAERS Safety Report 6497457-1 (Version None)
Quarter: 2009Q4

REPORT INFORMATION
  Report Type: 
  Country: None (occurrence: None)
  Receive Date: 20091211
  Receipt Date: 20091125
  Transmission Date: 20100525
  Serious: Yes (Other)
  Sender: FDA-Public Use
  Company Number: DSA_42099_2009

PATIENT
  Sex: Male

DRUGS (4)
  1. BUPROPION HCL [Suspect]
     Indication: BIPOLAR DISORDER
     Dosage: (150 MG OD ORAL)
     Route: 048
     Dates: start: 20090901
  2. LITHIUM CARBONATE [Suspect]
     Indication: BIPOLAR DISORDER
     Dosage: (DF)
  3. QUETIAPINE FUMARATE [Suspect]
     Indication: BIPOLAR DISORDER
     Dosage: (DF)
  4. LAMOTRIGINE [Suspect]
     Indication: BIPOLAR DISORDER
     Dosage: (DF)

REACTIONS (1)
  - HYPOGLYCAEMIA [None]
